FAERS Safety Report 15817777 (Version 1)
Quarter: 2019Q1

REPORT INFORMATION
  Report Type: Spontaneous
  Country: SI (occurrence: SI)
  Receive Date: 20190113
  Receipt Date: 20190113
  Transmission Date: 20190417
  Serious: Yes (Hospitalization)
  Sender: FDA-Public Use
  Company Number: SI-TEVA-2019-SI-998469

PATIENT
  Age: 50 Year
  Sex: Female

DRUGS (7)
  1. TRASTUZUMAB. [Concomitant]
     Active Substance: TRASTUZUMAB
     Indication: BREAST CANCER
  2. NALGESIN FORTE [Concomitant]
  3. EUTHYROX 125 MICROGRAM [Concomitant]
  4. SULFASALAZINE. [Concomitant]
     Active Substance: SULFASALAZINE
     Dosage: 2X1/DAY
  5. PACLITAXEL - CONCENTRATE FOR SOLUTION FOR INFUSION [Suspect]
     Active Substance: PACLITAXEL
     Indication: BREAST CANCER
     Dosage: 6 MG/ML CONCENTRAT FOE SOLUTION FOR INFUSION
     Route: 042
     Dates: start: 20181212, end: 20181212
  6. CLARITINE [Concomitant]
     Active Substance: LORATADINE
  7. IMIGRAN 50MG [Concomitant]

REACTIONS (3)
  - Tachycardia [Recovered/Resolved]
  - Abdominal pain [Recovered/Resolved]
  - Hot flush [Recovered/Resolved]

NARRATIVE: CASE EVENT DATE: 20181212
